FAERS Safety Report 21409441 (Version 4)
Quarter: 2022Q4

REPORT INFORMATION
  Report Type: Spontaneous
  Country: KR (occurrence: KR)
  Receive Date: 20221004
  Receipt Date: 20221024
  Transmission Date: 20230113
  Serious: Yes (Other)
  Sender: FDA-Public Use
  Company Number: KR-009507513-2210KOR000092

PATIENT
  Age: 47 Year
  Sex: Male
  Weight: 74 kg

DRUGS (10)
  1. PREVYMIS [Suspect]
     Active Substance: LETERMOVIR
     Indication: Antiviral prophylaxis
     Dosage: ONCE DAILY
     Route: 048
     Dates: start: 20210129, end: 20210129
  2. PREVYMIS [Suspect]
     Active Substance: LETERMOVIR
     Indication: Antiviral prophylaxis
     Dosage: ONCE DAILY
     Route: 048
     Dates: start: 20210130, end: 20210219
  3. PREVYMIS [Suspect]
     Active Substance: LETERMOVIR
     Dosage: ONCE DAILY
     Route: 048
     Dates: start: 20210222, end: 20210222
  4. TACROBELL [TACROLIMUS] [Concomitant]
     Indication: Prophylaxis against graft versus host disease
     Dosage: 0.25 MG 2/DAY
     Route: 048
     Dates: start: 20210129, end: 20211017
  5. REBAMIPIDE [Concomitant]
     Active Substance: REBAMIPIDE
     Indication: Gastritis prophylaxis
     Dosage: 100 MG 3/DAY
     Route: 048
     Dates: start: 20210204, end: 20211205
  6. ZYPREXA [Concomitant]
     Active Substance: OLANZAPINE
     Indication: Schizophrenia
     Dosage: 5 MG 1/DAY
     Route: 048
     Dates: start: 20210102, end: 20211206
  7. VIREAD [Concomitant]
     Active Substance: TENOFOVIR DISOPROXIL FUMARATE
     Indication: Antiviral prophylaxis
     Dosage: 300 MG 1/DAY
     Route: 048
     Dates: start: 20201229, end: 20211206
  8. IV GLOBULIN SN [Concomitant]
     Indication: Infection prophylaxis
     Dosage: STRENGTH: 10% (100 MG/ML), 200ML; 200 ML 1/DAY
     Route: 042
     Dates: start: 20210113, end: 20211207
  9. DAEWOONG URSA B [Concomitant]
     Indication: Hepatitis C
     Dosage: STRENGTH: 50 MG (+) 10 MG (+) 5 MG; 100 MG 1/DAY
     Route: 048
     Dates: start: 20201223, end: 20211207
  10. GODEX [ADENINE HYDROCHLORIDE;CARNITINE OROTATE;CYANOCOBALAMIN;LIVER EX [Concomitant]
     Indication: Hepatitis C
     Dosage: 2 CAP 3/DAY
     Route: 048
     Dates: start: 20210213, end: 20211206

REACTIONS (2)
  - Cytomegalovirus gastroenteritis [Unknown]
  - Drug ineffective [Unknown]

NARRATIVE: CASE EVENT DATE: 20210531
